FAERS Safety Report 7715353-6 (Version None)
Quarter: 2011Q3

REPORT INFORMATION
  Report Type: 
  Country: None (occurrence: None)
  Receive Date: 20110810
  Receipt Date: 20110621
  Transmission Date: 20111222
  Serious: No
  Sender: FDA-Public Use
  Company Number: 1000021703

PATIENT
  Age: 74 Year
  Sex: Female
  Weight: 77.1 kg

DRUGS (18)
  1. COPAXONE (GLATIRAMER ACETATE) (GLATIRAMER ACETATE) [Concomitant]
  2. OMEPRAZOLE [Concomitant]
  3. BABY ASPIRIN (ACETYLSALICYLIC ACID) (ACETYLSALICYLIC ACID) [Concomitant]
  4. NAMENDA [Concomitant]
  5. FISH OIL (FISH OIL) (FISH OIL) [Concomitant]
  6. CALCIUM (CALCIUM) (CALCIUM) [Concomitant]
  7. AMOXICILLIN [Concomitant]
  8. AMPYRA [Suspect]
     Indication: GAIT DISTURBANCE
     Dosage: 20 MG (10 MG, 2 IN 1 D), ORAL, 20 MG (10 MG, 2 IN 1 D), ORAL
     Route: 048
     Dates: start: 20110404, end: 20110420
  9. AMPYRA [Suspect]
     Indication: MULTIPLE SCLEROSIS
     Dosage: 20 MG (10 MG, 2 IN 1 D), ORAL, 20 MG (10 MG, 2 IN 1 D), ORAL
     Route: 048
     Dates: start: 20110404, end: 20110420
  10. AMPYRA [Suspect]
     Indication: GAIT DISTURBANCE
     Dosage: 20 MG (10 MG, 2 IN 1 D), ORAL, 20 MG (10 MG, 2 IN 1 D), ORAL
     Route: 048
     Dates: start: 20110525
  11. AMPYRA [Suspect]
     Indication: MULTIPLE SCLEROSIS
     Dosage: 20 MG (10 MG, 2 IN 1 D), ORAL, 20 MG (10 MG, 2 IN 1 D), ORAL
     Route: 048
     Dates: start: 20110525
  12. DICYCLOMINE (DICYCLOMINE) (DICYCLOMINE) [Concomitant]
  13. SAVELLA [Suspect]
     Indication: PAIN
     Dates: start: 20110401, end: 20110101
  14. ARMOUR THYROID (THYROID) (THYROID) [Concomitant]
  15. HYDROCORTISONE [Concomitant]
  16. LYRICA [Concomitant]
  17. ARICEPT [Concomitant]
  18. MAGNESIUM (MAGNESIUM) (MAGNESIUM) [Concomitant]

REACTIONS (2)
  - TREMOR [None]
  - MUSCULAR WEAKNESS [None]
